FAERS Safety Report 5097555-3 (Version None)
Quarter: 2006Q3

REPORT INFORMATION
  Report Type: 
  Country: None (occurrence: None)
  Receive Date: 20060901
  Receipt Date: 20060823
  Transmission Date: 20061208
  Serious: Yes (Hospitalization, Other)
  Sender: FDA-Public Use
  Company Number: 2006085422

PATIENT
  Age: 16 Year
  Sex: Male

DRUGS (10)
  1. SOLU-MEDROL [Suspect]
     Indication: NEPHROTIC SYNDROME
     Dosage: 1 GRAM (PULSE THERAPY), PARENTERAL
     Route: 051
     Dates: start: 20050512, end: 20050514
  2. PREDNISOLONE [Suspect]
     Indication: NEPHROTIC SYNDROME
     Dosage: 30  MG, ORAL
     Route: 048
     Dates: start: 20050515
  3. NEORAL [Suspect]
     Indication: NEPHROTIC SYNDROME
     Dosage: 150 MG, ORAL
     Route: 048
  4. MIZORIBINE (MIZORIBINE) [Concomitant]
  5. HEPARIN [Concomitant]
  6. ENALAPRIL MALEATE [Concomitant]
  7. VIT K CAP [Concomitant]
  8. ALFACALCIDOL (ALFACALCIDOL) [Concomitant]
  9. SELBEX (TEPRENONE) [Concomitant]
  10. BREDININ (MIZORIBINE) [Concomitant]

REACTIONS (3)
  - COLITIS ISCHAEMIC [None]
  - CONDITION AGGRAVATED [None]
  - GASTROINTESTINAL EROSION [None]
